FAERS Safety Report 7212448-0 (Version None)
Quarter: 2011Q1

REPORT INFORMATION
  Report Type: 
  Country: None (occurrence: None)
  Receive Date: 20110106
  Receipt Date: 20101231
  Transmission Date: 20110831
  Serious: No
  Sender: FDA-Public Use
  Company Number: US-PFIZER INC-2011000632

PATIENT
  Age: 20 Year
  Sex: Male

DRUGS (1)
  1. ADVIL CONGESTION RELIEF [Suspect]
     Dosage: 1 CAPLET
     Route: 048
     Dates: start: 20101228

REACTIONS (1)
  - RASH [None]
